FAERS Safety Report 4896891-0 (Version None)
Quarter: 2006Q1

REPORT INFORMATION
  Report Type: 
  Country: None (occurrence: None)
  Receive Date: 20060126
  Receipt Date: 20060117
  Transmission Date: 20060701
  Serious: Yes (Death, Other)
  Sender: FDA-Public Use
  Company Number: 2006AP000046

PATIENT
  Age: 64 Year
  Sex: Male

DRUGS (2)
  1. TICLOPIDINE HCL [Suspect]
     Indication: PROPHYLAXIS
     Dosage: SEE IMAGE
  2. TICLOPIDINE HCL [Suspect]
     Indication: THROMBOSIS IN DEVICE
     Dosage: SEE IMAGE

REACTIONS (5)
  - ASPARTATE AMINOTRANSFERASE INCREASED [None]
  - BLOOD ALKALINE PHOSPHATASE INCREASED [None]
  - JAUNDICE CHOLESTATIC [None]
  - PANCREATITIS ACUTE [None]
  - RENAL FAILURE ACUTE [None]
